FAERS Safety Report 20450796 (Version 3)
Quarter: 2022Q1

REPORT INFORMATION
  Report Type: Report from Study
  Country: CO (occurrence: CO)
  Receive Date: 20220209
  Receipt Date: 20220315
  Transmission Date: 20220424
  Serious: Yes (Hospitalization, Other)
  Sender: FDA-Public Use
  Company Number: CO-BAYER-2022A015506

PATIENT
  Age: 69 Year
  Sex: Female

DRUGS (1)
  1. ADEMPAS [Suspect]
     Active Substance: RIOCIGUAT
     Indication: Pulmonary arterial hypertension
     Dosage: 2.5 MG, Q8HR
     Dates: start: 20211104, end: 2022

REACTIONS (3)
  - Inflammation [Recovered/Resolved]
  - Arterial catheterisation [None]
  - Product dose omission issue [None]

NARRATIVE: CASE EVENT DATE: 20220101
